FAERS Safety Report 8997766 (Version 1)
Quarter: 2013Q1

REPORT INFORMATION
  Report Type: Report from Study
  Country: AU (occurrence: AU)
  Receive Date: 20130104
  Receipt Date: 20130104
  Transmission Date: 20140127
  Serious: Yes (Hospitalization, Other)
  Sender: FDA-Public Use
  Company Number: AU-ROCHE-1176500

PATIENT
  Age: 66 Year
  Sex: Male

DRUGS (1)
  1. TOCILIZUMAB [Suspect]
     Indication: RHEUMATOID ARTHRITIS
     Route: 042
     Dates: start: 20111209

REACTIONS (2)
  - Staphylococcal infection [Not Recovered/Not Resolved]
  - Skin ulcer [Not Recovered/Not Resolved]
